FAERS Safety Report 7536516-9 (Version None)
Quarter: 2011Q2

REPORT INFORMATION
  Report Type: 
  Country: None (occurrence: None)
  Receive Date: 20110608
  Receipt Date: 20110608
  Transmission Date: 20111010
  Serious: Yes (Hospitalization)
  Sender: FDA-Public Use
  Company Number: None

PATIENT
  Age: 73 Year
  Sex: Male
  Weight: 82 kg

DRUGS (1)
  1. MIDODRINE HYDROCHLORIDE [Suspect]
     Indication: ORTHOSTATIC HYPOTENSION
     Dosage: 2.5 MG BID PO
     Route: 048
     Dates: start: 20101218, end: 20110103

REACTIONS (3)
  - CONFUSIONAL STATE [None]
  - FALL [None]
  - ANGIOEDEMA [None]
